FAERS Safety Report 5670374-2 (Version None)
Quarter: 2008Q2

REPORT INFORMATION
  Report Type: 
  Country: None (occurrence: None)
  Receive Date: 20080305
  Receipt Date: 20070223
  Transmission Date: 20081010
  Serious: Yes (Other)
  Sender: FDA-Public Use
  Company Number: BDI-009177

PATIENT
  Age: 88 Year
  Sex: Female

DRUGS (1)
  1. ISOVUE-370 [Suspect]
     Indication: ANGIOGRAM
     Dosage: 100ML ONCE INTRAVENOUS (NOT OTHERWISE SPECIFIED)
     Route: 042
     Dates: start: 20070216, end: 20070216

REACTIONS (1)
  - HYPERSENSITIVITY [None]
